FAERS Safety Report 8925585 (Version 1)
Quarter: 2012Q4

REPORT INFORMATION
  Report Type: 
  Country: US (occurrence: US)
  Receive Date: 20121126
  Receipt Date: 20121126
  Transmission Date: 20130627
  Serious: Yes (Hospitalization)
  Sender: FDA-Public Use
  Company Number: US-BAYER-2012-121866

PATIENT
  Age: 22 Year
  Sex: Female
  Weight: 102.4 kg

DRUGS (8)
  1. YASMIN [Suspect]
  2. KETOROLAC [Concomitant]
     Dosage: 10 mg, TID
     Route: 048
  3. DEXAMETHASONE [Concomitant]
     Dosage: 0.5 mg, UNK
     Route: 048
  4. ZOFRAN [Concomitant]
     Indication: NAUSEA
     Dosage: 8 mg, UNK
     Route: 048
  5. TOPAMAX [Concomitant]
     Dosage: 100 mg, UNK
     Route: 048
     Dates: start: 20050725
  6. BROMOCRIPTINE [Concomitant]
     Dosage: 2.5 mg, alternate with ? tablet every other day
     Dates: start: 20051013
  7. BEN-GAY [Concomitant]
  8. PARLODEL [Concomitant]

REACTIONS (2)
  - Pulmonary embolism [None]
  - Deep vein thrombosis [Recovered/Resolved]
